FAERS Safety Report 7784531-2 (Version None)
Quarter: 2011Q3

REPORT INFORMATION
  Report Type: 
  Country: None (occurrence: None)
  Receive Date: 20110928
  Receipt Date: 20110923
  Transmission Date: 20111222
  Serious: Yes (Life-Threatening, Hospitalization)
  Sender: FDA-Public Use
  Company Number: PHHO2010RU03694

PATIENT
  Sex: Male
  Weight: 79.9 kg

DRUGS (21)
  1. BLINDED ALISKIREN [Suspect]
     Indication: CARDIAC FAILURE
     Dosage: CODE NOT BROKEN
     Route: 048
     Dates: start: 20091126
  2. BLINDED NO TREATMENT RECEIVED [Suspect]
     Indication: CARDIAC FAILURE
     Dosage: CODE NOT BROKEN
     Route: 048
     Dates: start: 20091126
  3. ENALAPRIL MALEATE [Suspect]
     Dosage: NO TREATMENT
     Route: 048
     Dates: start: 20100307, end: 20100309
  4. BLINDED NO TREATMENT RECEIVED [Suspect]
     Dosage: NO TREATMENT
     Route: 048
     Dates: start: 20100307, end: 20100309
  5. ASPIRIN [Concomitant]
     Indication: MYOCARDIAL INFARCTION
     Dosage: 100 MG, QD
     Route: 048
     Dates: start: 20020814
  6. ASPIRIN [Concomitant]
     Indication: ANGINA PECTORIS
  7. SIMVASTATIN [Concomitant]
     Indication: DYSLIPIDAEMIA
     Dosage: 20 MG, QD
     Route: 048
     Dates: start: 20090413
  8. SIMVASTATIN [Concomitant]
     Indication: ANGINA PECTORIS
  9. BLINDED ALISKIREN [Suspect]
     Dosage: CODE NOT BROKEN
     Route: 048
     Dates: start: 20100310
  10. ENALAPRIL MALEATE [Suspect]
     Dosage: CODE NOT BROKEN
     Route: 048
     Dates: start: 20100310
  11. ISOSORBIDE DINITRATE [Suspect]
     Indication: ANGINA PECTORIS
  12. ENALAPRIL MALEATE [Suspect]
     Indication: CARDIAC FAILURE
     Dosage: CODE NOT BROKEN
     Route: 048
     Dates: start: 20091126
  13. BLINDED ALISKIREN [Suspect]
     Dosage: NO TREATMENT
     Route: 048
     Dates: start: 20100307, end: 20100309
  14. ENALAPRIL MALEATE [Suspect]
     Indication: CARDIAC FAILURE
     Dosage: UNK
     Route: 048
     Dates: start: 20091008
  15. NITROGLYCERIN [Suspect]
  16. BLINDED NO TREATMENT RECEIVED [Suspect]
     Dosage: CODE NOT BROKEN
     Route: 048
     Dates: start: 20100310
  17. BLINDED ALISKIREN [Suspect]
     Dosage: CODE NOT BROKEN
     Route: 048
     Dates: start: 20100303, end: 20100306
  18. ENALAPRIL MALEATE [Suspect]
     Dosage: CODE NOT BROKEN
     Route: 048
     Dates: start: 20100303, end: 20100306
  19. BLINDED NO TREATMENT RECEIVED [Suspect]
     Dosage: CODE NOT BROKEN
     Route: 048
     Dates: start: 20100303, end: 20100306
  20. ALISKIREN [Suspect]
     Indication: CARDIAC FAILURE
     Dosage: UNK
     Route: 048
     Dates: start: 20091111
  21. METFORMIN HCL [Concomitant]
     Indication: DIABETES MELLITUS
     Dosage: 200 MG, QD
     Route: 048
     Dates: start: 20080320

REACTIONS (16)
  - CHEST PAIN [None]
  - PULMONARY CONGESTION [None]
  - CARDIAC FAILURE [None]
  - DIZZINESS [None]
  - MYOCARDIAL ISCHAEMIA [None]
  - RIGHT VENTRICULAR FAILURE [None]
  - ANGINA PECTORIS [None]
  - DISEASE PROGRESSION [None]
  - CARDIAC DISORDER [None]
  - LOSS OF CONSCIOUSNESS [None]
  - VENTRICULAR EXTRASYSTOLES [None]
  - COLD SWEAT [None]
  - VERTIGO [None]
  - ANGINA UNSTABLE [None]
  - HYPOTENSION [None]
  - CIRCULATORY COLLAPSE [None]
